FAERS Safety Report 9792988 (Version 1)
Quarter: 2014Q1

REPORT INFORMATION
  Report Type: Report from Study
  Country: JP (occurrence: JP)
  Receive Date: 20140102
  Receipt Date: 20140102
  Transmission Date: 20141002
  Serious: Yes (Death)
  Sender: FDA-Public Use
  Company Number: JP-ACTELION-A-CH2013-93011

PATIENT
  Age: 76 Year
  Sex: Female
  Weight: 32 kg

DRUGS (12)
  1. TRACLEER [Suspect]
     Indication: PULMONARY ARTERIAL HYPERTENSION
     Dosage: 125 MG, BID
     Route: 048
     Dates: start: 20110404, end: 20130320
  2. BERAPROST SODIUM [Concomitant]
  3. DILTIAZEM HYDROCHLORIDE [Concomitant]
  4. LEVOTHYROXINE SODIUM [Concomitant]
  5. ETIZOLAM [Concomitant]
  6. RABBIT VACCINIA EXTRACT [Concomitant]
  7. ALFACALCIDOL [Concomitant]
  8. CLOSTRIDIUM BUTYRICUM [Concomitant]
  9. OMEPRAZOLE [Concomitant]
  10. PHYTONADIONE [Concomitant]
  11. MOSAPRIDE CITRATE [Concomitant]
  12. ASPIRIN [Concomitant]

REACTIONS (1)
  - Hepatic cirrhosis [Fatal]
